FAERS Safety Report 10145867 (Version 1)
Quarter: 2014Q2

REPORT INFORMATION
  Report Type: Spontaneous
  Country: US (occurrence: US)
  Receive Date: 20140501
  Receipt Date: 20140501
  Transmission Date: 20141212
  Serious: No
  Sender: FDA-Public Use
  Company Number: US-ABBVIE-13P-163-1144679-00

PATIENT
  Age: 70 Year
  Sex: Male
  Weight: 116.68 kg

DRUGS (3)
  1. CREON [Suspect]
     Indication: PANCREATICODUODENECTOMY
     Dosage: 1-3 CAPS ; 24000 UNITS W/MEALSW/SNACKS/MEALS
     Route: 048
     Dates: start: 2007
  2. CREON [Suspect]
     Indication: PANCREATICODUODENECTOMY
     Dosage: 1-3 CAPS W/SNACKS/MEALS; 12000 UNITS W/SNACKS
     Route: 048
     Dates: start: 2007
  3. NEXIUM [Concomitant]
     Indication: GASTROOESOPHAGEAL REFLUX DISEASE

REACTIONS (3)
  - Rash [Not Recovered/Not Resolved]
  - Pruritus [Not Recovered/Not Resolved]
  - Tinea cruris [Recovered/Resolved]
